FAERS Safety Report 9656685 (Version 1)
Quarter: 2013Q4

REPORT INFORMATION
  Report Type: Spontaneous
  Country: BR (occurrence: BR)
  Receive Date: 20131030
  Receipt Date: 20131030
  Transmission Date: 20140711
  Serious: Yes (Other)
  Sender: FDA-Public Use
  Company Number: BR-JNJFOC-20131014762

PATIENT
  Sex: Male
  Weight: 93 kg

DRUGS (7)
  1. REMICADE [Suspect]
     Indication: COLITIS
     Route: 042
     Dates: start: 201305
  2. REMICADE [Suspect]
     Indication: COLITIS
     Route: 042
     Dates: start: 2011
  3. MESALAZINE [Concomitant]
     Indication: COLITIS
     Route: 065
  4. PROPRANOLOL [Concomitant]
     Indication: HYPERTENSION
     Route: 065
  5. LOSARTAN [Concomitant]
     Indication: HYPERTENSION
     Route: 065
  6. HYDROCHLOROTHIAZIDE [Concomitant]
     Indication: HYPERTENSION
     Route: 065
  7. FEXOFENADINE HYDROCHLORIDE [Concomitant]
     Indication: PREMEDICATION
     Route: 065

REACTIONS (5)
  - Feeling hot [Not Recovered/Not Resolved]
  - Tachycardia [Not Recovered/Not Resolved]
  - Infusion related reaction [Not Recovered/Not Resolved]
  - Dyspnoea [Not Recovered/Not Resolved]
  - Abdominal pain [Not Recovered/Not Resolved]
